FAERS Safety Report 18399536 (Version 1)
Quarter: 2020Q4

REPORT INFORMATION
  Report Type: Spontaneous
  Country: US (occurrence: US)
  Receive Date: 20201019
  Receipt Date: 20201019
  Transmission Date: 20210114
  Serious: No
  Sender: FDA-Public Use
  Company Number: US-BEH-2020123455

PATIENT
  Age: 43 Year
  Sex: Female

DRUGS (6)
  1. FLUTICASONE. [Concomitant]
     Active Substance: FLUTICASONE
  2. MONTELUKAST [Concomitant]
     Active Substance: MONTELUKAST SODIUM
  3. MUPIROCIN. [Concomitant]
     Active Substance: MUPIROCIN
  4. HIZENTRA [Suspect]
     Active Substance: HUMAN IMMUNOGLOBULIN G
     Dosage: 9 GRAM (45 ML), TOT
     Route: 058
     Dates: start: 20201004, end: 20201004
  5. HIZENTRA [Suspect]
     Active Substance: HUMAN IMMUNOGLOBULIN G
     Dosage: 9 GRAM (45 ML), QW
     Route: 058
     Dates: start: 20200324
  6. HIZENTRA [Suspect]
     Active Substance: HUMAN IMMUNOGLOBULIN G
     Indication: IMMUNODEFICIENCY COMMON VARIABLE
     Dosage: 9 GRAM (45 ML), QW
     Route: 058
     Dates: start: 20190404

REACTIONS (3)
  - Infusion site discomfort [Not Recovered/Not Resolved]
  - Infusion site pain [Not Recovered/Not Resolved]
  - Infusion site mass [Not Recovered/Not Resolved]

NARRATIVE: CASE EVENT DATE: 20201004
